FAERS Safety Report 4680978-1 (Version None)
Quarter: 2005Q2

REPORT INFORMATION
  Report Type: 
  Country: None (occurrence: None)
  Receive Date: 20050603
  Receipt Date: 20020605
  Transmission Date: 20051028
  Serious: Yes (Death, Hospitalization)
  Sender: FDA-Public Use
  Company Number: PHBS2002JP06858

PATIENT
  Age: 64 Year
  Sex: Female
  Weight: 50 kg

DRUGS (11)
  1. GLEEVEC [Suspect]
     Indication: CHRONIC MYELOID LEUKAEMIA
     Dosage: 200 MG, QD
     Route: 048
     Dates: start: 20020516, end: 20020605
  2. GLEEVEC [Suspect]
     Dosage: 100 MG/D
     Route: 048
     Dates: start: 20020607, end: 20020615
  3. NORVASC [Suspect]
     Indication: HYPERTENSION
     Dosage: 7.5 MG/DAY
     Route: 048
  4. SIGMART [Concomitant]
     Indication: ANGINA PECTORIS
     Dosage: 15 MG/DAY
     Route: 048
  5. PLETAL [Concomitant]
     Indication: ANGINA PECTORIS
     Dosage: 200 MG/DAY
     Route: 048
  6. BAYASPIRIN [Concomitant]
     Indication: ANGINA PECTORIS
     Dosage: 100 MG/DAY
     Route: 048
  7. NITRODERM [Concomitant]
     Indication: ANGINA PECTORIS
     Route: 061
  8. CALCIUM CARBONATE [Concomitant]
     Indication: PROPHYLAXIS
     Dosage: 7.5 G/DAY
     Route: 048
     Dates: start: 19930101
  9. EPOGIN [Concomitant]
     Indication: NEPHROGENIC ANAEMIA
     Dosage: 9 MIU/DAY
     Route: 042
     Dates: start: 19930101
  10. CARDENALIN [Suspect]
     Indication: HYPERTENSION
     Dosage: 2 MG/DAY
     Route: 048
     Dates: end: 20020603
  11. INTRON A ^ESSEX CHEMIE^ [Concomitant]
     Indication: CHRONIC MYELOID LEUKAEMIA
     Dosage: 300 MIU, 300 MIU
     Route: 042
     Dates: start: 19980529, end: 20020514

REACTIONS (15)
  - ANGINA PECTORIS [None]
  - ANGIOPLASTY [None]
  - BACK PAIN [None]
  - BLOOD LACTATE DEHYDROGENASE INCREASED [None]
  - BLOOD PRESSURE DECREASED [None]
  - CARDIAC FAILURE CONGESTIVE [None]
  - DEATH [None]
  - DRUG INTERACTION [None]
  - DYSPNOEA [None]
  - EJECTION FRACTION DECREASED [None]
  - FLUID OVERLOAD [None]
  - GASTRITIS [None]
  - HAEMOLYTIC ANAEMIA [None]
  - MALAISE [None]
  - STENT PLACEMENT [None]
